FAERS Safety Report 5124019-0 (Version None)
Quarter: 2006Q4

REPORT INFORMATION
  Report Type: 
  Country: None (occurrence: None)
  Receive Date: 20061010
  Receipt Date: 20061004
  Transmission Date: 20070319
  Serious: Yes (Death, Other)
  Sender: FDA-Public Use
  Company Number: PHEH2006US12506

PATIENT
  Age: 47 Year
  Sex: Female
  Weight: 102.04 kg

DRUGS (10)
  1. TAXOL [Concomitant]
     Indication: TUMOUR MARKER INCREASED
     Dosage: 380 MG, UNK
     Dates: start: 20031028
  2. OXYCONTIN [Concomitant]
     Dosage: 80 MG, 2 TABS BID
     Route: 048
  3. OXYCODONE HCL [Concomitant]
     Dosage: 5-15MG Q 4 HRS PRN
  4. ZOLOFT [Concomitant]
     Dosage: 100MG QD
  5. DILANTIN D.A. [Concomitant]
     Dosage: 2 TABS BID
     Route: 048
  6. NEUPOGEN [Concomitant]
     Indication: NEUTROPENIA
     Dosage: 300 MCQ
     Route: 058
  7. LACTULOSE [Concomitant]
     Dosage: UNK, PRN
  8. ZOMETA [Suspect]
     Indication: METASTASES TO BONE
     Dosage: 4 MG IV Q 4 WEEKS
     Dates: start: 20011205, end: 20050810
  9. DECADRON #1 [Concomitant]
     Indication: PROPHYLACTIC CHEMOTHERAPY
     Dosage: 20 MG, IV Q 3 WEEKS
     Dates: start: 20000816, end: 20060327
  10. AREDIA [Suspect]
     Indication: METASTASES TO BONE
     Dosage: UNK, UNK
     Dates: start: 20000913, end: 20011107

REACTIONS (16)
  - BONE DISORDER [None]
  - HEPATIC FAILURE [None]
  - JAUNDICE [None]
  - MALIGNANT NEOPLASM PROGRESSION [None]
  - METASTASES TO CENTRAL NERVOUS SYSTEM [None]
  - METASTASES TO LIVER [None]
  - NEUTROPENIA [None]
  - OEDEMA PERIPHERAL [None]
  - ORAL INTAKE REDUCED [None]
  - ORAL PAIN [None]
  - OSTEONECROSIS [None]
  - OSTEOPENIA [None]
  - PAIN [None]
  - PLEURAL EFFUSION [None]
  - TOOTH EXTRACTION [None]
  - TUMOUR MARKER INCREASED [None]
